FAERS Safety Report 7629443-X (Version None)
Quarter: 2011Q3

REPORT INFORMATION
  Report Type: 
  Country: None (occurrence: None)
  Receive Date: 20110715
  Receipt Date: 20110629
  Transmission Date: 20111222
  Serious: Yes (Other)
  Sender: FDA-Public Use
  Company Number: 018127

PATIENT
  Sex: Female

DRUGS (2)
  1. MACUGEN [Suspect]
     Indication: CHOROIDAL NEOVASCULARISATION
     Dosage: 0.3 MG, SINGLE, INTRAOCULAR
     Route: 031
     Dates: start: 20090308, end: 20091028
  2. MACUGEN [Suspect]
     Indication: AGE-RELATED MACULAR DEGENERATION
     Dosage: 0.3 MG, SINGLE, INTRAOCULAR
     Route: 031
     Dates: start: 20090308, end: 20091028

REACTIONS (4)
  - INJECTION SITE PAIN [None]
  - PALPITATIONS [None]
  - BLINDNESS [None]
  - OEDEMA [None]
